FAERS Safety Report 9560375 (Version 2)
Quarter: 2013Q3

REPORT INFORMATION
  Report Type: Spontaneous
  Country: DE (occurrence: PT)
  Receive Date: 20130927
  Receipt Date: 20130927
  Transmission Date: 20140515
  Serious: Yes (Hospitalization)
  Sender: FDA-Public Use
  Company Number: PT-FRI-1000027853

PATIENT
  Age: 76 Year
  Sex: Female

DRUGS (8)
  1. MEMANTINE [Suspect]
     Indication: DEMENTIA
     Dosage: 5 MG
     Route: 048
     Dates: start: 20110104, end: 201112
  2. VENLAFAXINE HYDROCHLORIDE [Suspect]
     Indication: DEPRESSION
     Dosage: 75 MG
     Route: 048
     Dates: start: 201010, end: 201111
  3. PROTELOS [Concomitant]
     Dosage: 2 G
     Route: 048
  4. XALACOM [Concomitant]
     Indication: GLAUCOMA
     Route: 047
  5. TRUSOPT [Concomitant]
     Indication: GLAUCOMA
     Route: 047
  6. AMILORIDE [Concomitant]
     Indication: HYPERTENSION
     Route: 048
  7. CALCIUM [Concomitant]
     Indication: OSTEOPOROSIS
     Route: 048
  8. SIMVASTATIN [Concomitant]
     Indication: HYPERCHOLESTEROLAEMIA
     Dosage: 10 MG
     Route: 048

REACTIONS (1)
  - Liver function test abnormal [Unknown]
